FAERS Safety Report 9388775 (Version 2)
Quarter: 2013Q3

REPORT INFORMATION
  Report Type: Report from Study
  Country: DE (occurrence: DE)
  Receive Date: 20130708
  Receipt Date: 20130709
  Transmission Date: 20140515
  Serious: Yes (Hospitalization)
  Sender: FDA-Public Use
  Company Number: DE-GLAXOSMITHKLINE-B0906064A

PATIENT
  Sex: Male

DRUGS (6)
  1. PAZOPANIB [Suspect]
     Indication: METASTATIC RENAL CELL CARCINOMA
     Route: 048
     Dates: start: 20130122
  2. PANTOPRAZOL [Concomitant]
     Dates: start: 20130317
  3. VOLTAREN [Concomitant]
     Dates: start: 201301
  4. OXYCODON [Concomitant]
     Dosage: 10MG TWICE PER DAY
  5. LYRICA [Concomitant]
     Dosage: 25MG TWICE PER DAY
  6. AMINEURIN [Concomitant]
     Dosage: 20MG TWICE PER DAY

REACTIONS (1)
  - Abscess jaw [Not Recovered/Not Resolved]
